FAERS Safety Report 9484325 (Version 3)
Quarter: 2013Q4

REPORT INFORMATION
  Report Type: Spontaneous
  Country: US (occurrence: US)
  Receive Date: 20130828
  Receipt Date: 20131107
  Transmission Date: 20140711
  Serious: Yes (Death, Other)
  Sender: FDA-Public Use
  Company Number: PHEH2013US018139

PATIENT
  Sex: Male

DRUGS (3)
  1. COMTAN [Suspect]
     Indication: PARKINSON^S DISEASE
     Dosage: 200 MG, UNK
  2. CARBIDOPA LEVODOPA [Concomitant]
     Dosage: UNK UKN, UNK
  3. SELEGILINE [Concomitant]
     Dosage: UNK UKN, UNK

REACTIONS (3)
  - Pulmonary embolism [Fatal]
  - Fall [Fatal]
  - Hip fracture [Unknown]
